FAERS Safety Report 7324651-X (Version None)
Quarter: 2011Q1

REPORT INFORMATION
  Report Type: 
  Country: None (occurrence: None)
  Receive Date: 20110301
  Receipt Date: 20110218
  Transmission Date: 20110831
  Serious: Yes (Hospitalization)
  Sender: FDA-Public Use
  Company Number: PHHY2011GB13334

PATIENT
  Age: 7 Year
  Sex: Female

DRUGS (4)
  1. LISINOPRIL [Concomitant]
  2. CITALOPRAM [Concomitant]
  3. ADIZEM - SLOW RELEASE [Concomitant]
     Dosage: 180 MG, QD
  4. SIMVASTATIN [Suspect]
     Indication: HYPERCHOLESTEROLAEMIA
     Dosage: 40 MG, QD
     Route: 048
     Dates: start: 20090401, end: 20110126

REACTIONS (4)
  - RHABDOMYOLYSIS [None]
  - BLOOD CREATINE PHOSPHOKINASE INCREASED [None]
  - SINUS ARRHYTHMIA [None]
  - CHEST PAIN [None]
